FAERS Safety Report 4738677-3 (Version None)
Quarter: 2005Q3

REPORT INFORMATION
  Report Type: 
  Country: None (occurrence: None)
  Receive Date: 20050729
  Receipt Date: 20040806
  Transmission Date: 20060218
  Serious: Yes (Other)
  Sender: FDA-Public Use
  Company Number: US-2004-030024

PATIENT
  Age: 59 Year
  Sex: Male
  Weight: 90.7 kg

DRUGS (1)
  1. MAGNEVIST [Suspect]
     Indication: ANGIOGRAM
     Dosage: 40 ML, 1 DOSE, INTRAVENOUS
     Route: 042
     Dates: start: 20040806, end: 20040806

REACTIONS (5)
  - ANAPHYLACTOID REACTION [None]
  - CONFUSIONAL STATE [None]
  - COUGH [None]
  - HYPERHIDROSIS [None]
  - RETCHING [None]
